FAERS Safety Report 6244342-6 (Version None)
Quarter: 2009Q2

REPORT INFORMATION
  Report Type: 
  Country: None (occurrence: None)
  Receive Date: 20090625
  Receipt Date: 20090619
  Transmission Date: 20091009
  Serious: Yes (Hospitalization)
  Sender: FDA-Public Use
  Company Number: SI-ROCHE-632240

PATIENT
  Sex: Male
  Weight: 90 kg

DRUGS (4)
  1. CAPECITABINE [Suspect]
     Indication: COLON CANCER
     Dosage: FOR DAY 1-14, MOST RECENT DOSE: 05 MAY 2009
     Route: 048
     Dates: start: 20090422
  2. CAPECITABINE [Suspect]
     Dosage: DOSE REDUCED TO 75%
     Route: 048
     Dates: start: 20090530
  3. BEVACIZUMAB [Suspect]
     Indication: COLON CANCER
     Dosage: INTERRUPTED
     Route: 042
     Dates: start: 20090427
  4. BEVACIZUMAB [Suspect]
     Route: 042
     Dates: start: 20090529

REACTIONS (1)
  - COLITIS [None]
